FAERS Safety Report 17123733 (Version 1)
Quarter: 2019Q4

REPORT INFORMATION
  Report Type: Spontaneous
  Country: FR (occurrence: FR)
  Receive Date: 20191206
  Receipt Date: 20191206
  Transmission Date: 20200122
  Serious: Yes (Life-Threatening)
  Sender: FDA-Public Use
  Company Number: FR-MYLANLABS-2019M1120575

PATIENT
  Age: 38 Year
  Sex: Female
  Weight: 85.5 kg

DRUGS (9)
  1. TRAMADOL. [Concomitant]
     Active Substance: TRAMADOL
     Dosage: UNK
  2. ETOPOSIDE. [Suspect]
     Active Substance: ETOPOSIDE
     Indication: PLASMA CELL MYELOMA RECURRENT
     Dosage: 40 MILLIGRAM/SQ. METER, QD
     Route: 041
     Dates: start: 20190626, end: 20190629
  3. DOXORUBICINE                       /00330901/ [Suspect]
     Active Substance: DOXORUBICIN
     Indication: PLASMA CELL MYELOMA RECURRENT
     Dosage: 10 MILLIGRAM/SQ. METER
     Route: 041
     Dates: start: 20190626, end: 20190629
  4. ENTECAVIR MONOHYDRATE [Concomitant]
     Active Substance: ENTECAVIR
     Dosage: UNK
  5. ALLOPURINOL. [Concomitant]
     Active Substance: ALLOPURINOL
     Dosage: UNK
  6. CISPLATIN. [Suspect]
     Active Substance: CISPLATIN
     Indication: PLASMA CELL MYELOMA RECURRENT
     Dosage: 10 MILLIGRAM/SQ. METER, QD
     Route: 041
     Dates: start: 20190626, end: 20190629
  7. DEXAMETHASONE. [Concomitant]
     Active Substance: DEXAMETHASONE
     Dosage: UNK
  8. KARDEGIC [Concomitant]
     Active Substance: ASPIRIN DL-LYSINE
     Dosage: UNK
  9. CYCLOPHOSPHAMIDE. [Suspect]
     Active Substance: CYCLOPHOSPHAMIDE
     Indication: PLASMA CELL MYELOMA RECURRENT
     Dosage: 400 MILLIGRAM/SQ. METER, QD
     Route: 041
     Dates: start: 20190626, end: 20190629

REACTIONS (1)
  - Myocarditis [Recovering/Resolving]

NARRATIVE: CASE EVENT DATE: 20190711
